FAERS Safety Report 6217468-0 (Version None)
Quarter: 2009Q2

REPORT INFORMATION
  Report Type: 
  Country: None (occurrence: None)
  Receive Date: 20090608
  Receipt Date: 20081110
  Transmission Date: 20091009
  Serious: No
  Sender: FDA-Public Use
  Company Number: A0755813A

PATIENT
  Age: 52 Year
  Sex: Male

DRUGS (4)
  1. WELLBUTRIN XL [Suspect]
     Indication: DEPRESSION
     Dosage: 150MG PER DAY
     Route: 048
     Dates: start: 20081108
  2. LIPITOR [Concomitant]
  3. LEVOTHYROXINE [Concomitant]
  4. IMITREX [Concomitant]

REACTIONS (1)
  - MIGRAINE [None]
